FAERS Safety Report 7576601-9 (Version None)
Quarter: 2011Q2

REPORT INFORMATION
  Report Type: 
  Country: None (occurrence: None)
  Receive Date: 20110628
  Receipt Date: 20110607
  Transmission Date: 20111010
  Serious: Yes (Hospitalization, Other)
  Sender: FDA-Public Use
  Company Number: US-BAYER-201041845NA

PATIENT
  Age: 32 Year
  Sex: Female
  Weight: 79 kg

DRUGS (9)
  1. YAZ [Suspect]
     Indication: CONTRACEPTION
     Dosage: 1 DF, QD
     Dates: start: 20080514, end: 20100426
  2. VERAMYST [Concomitant]
  3. TOPAMAX [Concomitant]
  4. IMITREX [Concomitant]
     Dosage: UNK
     Dates: start: 20030101, end: 20090101
  5. ZITHROMAX [Concomitant]
  6. CLONAZEPAM [Concomitant]
     Dosage: UNK UNK, QD
     Dates: start: 20080101, end: 20100101
  7. PREDNISONE [Concomitant]
     Dosage: 20 MG, UNK
     Dates: start: 20040101, end: 20090101
  8. ZYRTEC [Concomitant]
  9. IBUPROFEN [Concomitant]
     Dosage: UNK
     Dates: start: 20090506

REACTIONS (3)
  - GALLBLADDER INJURY [None]
  - BILE DUCT STONE [None]
  - CHOLECYSTITIS CHRONIC [None]
